FAERS Safety Report 7577919-6 (Version None)
Quarter: 2011Q2

REPORT INFORMATION
  Report Type: 
  Country: None (occurrence: None)
  Receive Date: 20110628
  Receipt Date: 20110621
  Transmission Date: 20111010
  Serious: Yes (Hospitalization, Other)
  Sender: FDA-Public Use
  Company Number: PHEH2006US10887

PATIENT
  Sex: Female
  Weight: 77.097 kg

DRUGS (43)
  1. PROCRIT                            /00909301/ [Concomitant]
     Indication: ANAEMIA
     Dosage: 40,000 UNITS WK FOR 4 WKS
     Route: 058
     Dates: start: 20040212
  2. TRASTUZUMAB [Concomitant]
  3. ZOMETA [Suspect]
     Indication: METASTASES TO BONE
     Dosage: 4MG Q4WK
     Dates: start: 20030425, end: 20061201
  4. DIPHENHYDRAMINE HCL [Concomitant]
  5. BEXTRA [Concomitant]
  6. AMBIEN [Concomitant]
     Dosage: 5MG,
     Dates: start: 19980507
  7. ROXICET [Concomitant]
     Dosage: 5-325 MG,
     Dates: start: 19980507
  8. COMPAZINE [Concomitant]
     Dosage: UNK
     Dates: start: 19980806
  9. CIPROFLOXACIN HCL [Concomitant]
     Dosage: 750MG,
     Dates: start: 19980819
  10. DICLOXACILLIN [Concomitant]
     Dosage: 500MG,
  11. FENOFIBRIC ACID [Concomitant]
     Indication: BREAST CANCER
     Dosage: 2.5MG QD
     Route: 048
     Dates: start: 20031121
  12. PERCOCET [Concomitant]
     Dosage: UNK
  13. ACETAMINOPHEN [Concomitant]
  14. MEPERIDINE HCL [Concomitant]
  15. NEUPOGEN [Concomitant]
  16. PEPCID [Concomitant]
  17. OXYCODONE HCL AND ACETAMINOPHEN [Concomitant]
     Dosage: 5-325MG,
     Dates: start: 20020720
  18. TAMOXIFEN CITRATE [Concomitant]
  19. IRON SUPPLEMENTS [Concomitant]
     Dosage: UNK
  20. COLACE [Concomitant]
  21. ZYRTEC [Concomitant]
     Dosage: 10MG,
     Dates: start: 20000720
  22. TRIAMCINOLONE [Concomitant]
     Dosage: 0.1%,
     Dates: start: 20011017
  23. AMITRIPTYLINE HCL [Concomitant]
     Dosage: 10MG, TAB
     Dates: start: 20011211
  24. AREDIA [Suspect]
  25. ZOLADEX [Concomitant]
     Indication: METASTASES TO BONE
     Dosage: 3.6-10.8MG Q3MO
     Route: 058
     Dates: start: 20030425
  26. LOVENOX [Concomitant]
  27. DIAZEPAM [Concomitant]
     Dosage: UNK
     Dates: start: 19980805
  28. CYCLOBENZAPRINE [Concomitant]
     Dosage: 10MG,
  29. PENICILLIN VK [Concomitant]
     Dosage: 500MG,
     Dates: start: 20021210
  30. ASPIRIN [Concomitant]
  31. OXYCONTIN [Concomitant]
  32. CEPHALEXIN [Concomitant]
     Dosage: 500MG,
     Dates: start: 19980527
  33. LYRICA [Concomitant]
  34. HERCEPTIN [Concomitant]
     Indication: BREAST CANCER
     Dosage: 55MG UNK
     Route: 042
     Dates: start: 20031016
  35. IBUPROFEN [Concomitant]
  36. TRIMOX [Concomitant]
     Dosage: 250MG,
     Dates: start: 19990826
  37. VEETIDS [Concomitant]
     Dosage: 500MG,
  38. ERY-TAB [Concomitant]
     Dosage: UNK
     Dates: start: 20000720
  39. PREDNISONE [Concomitant]
     Dosage: 10MG,
     Dates: start: 20021125
  40. OXYCODONE HCL AND ACETAMINOPHEN [Concomitant]
     Dosage: 5-325MG,
     Dates: start: 20030303
  41. XELODA [Concomitant]
     Indication: BREAST CANCER
     Dates: start: 20030721
  42. NAVELBINE [Concomitant]
     Indication: BREAST CANCER
     Dosage: UNK WKLY X4WK
     Route: 042
     Dates: start: 20031001
  43. KEFLEX [Concomitant]

REACTIONS (43)
  - LUNG NEOPLASM [None]
  - HEPATIC CYST [None]
  - EXCESSIVE GRANULATION TISSUE [None]
  - BONE DISORDER [None]
  - TOOTH DISORDER [None]
  - GRANULOMA [None]
  - MUSCLE SPASMS [None]
  - PATHOLOGICAL FRACTURE [None]
  - PAIN [None]
  - SINUS HEADACHE [None]
  - OSTEONECROSIS [None]
  - CELLULITIS [None]
  - HEADACHE [None]
  - METASTASES TO BONE [None]
  - PAIN IN JAW [None]
  - DIVERTICULUM INTESTINAL [None]
  - OSTEOSCLEROSIS [None]
  - NECK PAIN [None]
  - OSTEITIS [None]
  - CERVIX INFLAMMATION [None]
  - SPINAL OSTEOARTHRITIS [None]
  - HERPES ZOSTER [None]
  - INJURY [None]
  - ANXIETY [None]
  - METASTATIC NEOPLASM [None]
  - NEUTROPENIA [None]
  - DENTAL CARIES [None]
  - SINUS DISORDER [None]
  - WOUND INFECTION STAPHYLOCOCCAL [None]
  - RASH [None]
  - SPLENOMEGALY [None]
  - BONE PAIN [None]
  - FRACTURE NONUNION [None]
  - ANAEMIA [None]
  - OSTEOARTHRITIS [None]
  - MELANOCYTIC NAEVUS [None]
  - ACUTE SINUSITIS [None]
  - OSTEONECROSIS OF JAW [None]
  - FUNGAL INFECTION [None]
  - OSTEOMYELITIS ACUTE [None]
  - ARTHRALGIA [None]
  - ALOPECIA AREATA [None]
  - HYPOAESTHESIA [None]
